FAERS Safety Report 8501519-4 (Version None)
Quarter: 2012Q3

REPORT INFORMATION
  Report Type: 
  Country: None (occurrence: None)
  Receive Date: 20120710
  Receipt Date: 20120703
  Transmission Date: 20120928
  Serious: Yes (Death, Life-Threatening, Other)
  Sender: FDA-Public Use
  Company Number: GB-ELI_LILLY_AND_COMPANY-GB201207001092

PATIENT
  Age: 59 Year
  Sex: Male
  Weight: 95 kg

DRUGS (10)
  1. AMLODIPINE [Concomitant]
  2. METFORMIN HCL [Concomitant]
     Indication: TYPE 2 DIABETES MELLITUS
     Dosage: UNK
     Dates: start: 19960901
  3. CIPROFIBRATE [Concomitant]
  4. ENALAPRIL MALEATE [Concomitant]
  5. ACETAMINOPHEN AND CODEINE PHOSPHATE [Concomitant]
  6. GLICLAZIDE [Concomitant]
  7. PRAVASTATIN [Concomitant]
  8. BYETTA [Suspect]
     Indication: TYPE 2 DIABETES MELLITUS
     Dosage: UNK UNK, UNKNOWN
     Dates: start: 20080601
  9. DOXAZOSIN MESYLATE [Concomitant]
  10. ASPIRIN [Concomitant]

REACTIONS (20)
  - CARDIOMEGALY [None]
  - CARDIAC FAILURE CONGESTIVE [None]
  - SYSTOLIC DYSFUNCTION [None]
  - DIZZINESS [None]
  - OBSTRUCTIVE AIRWAYS DISORDER [None]
  - LOWER RESPIRATORY TRACT INFECTION [None]
  - DIABETIC MICROANGIOPATHY [None]
  - BRONCHOPNEUMONIA [None]
  - LIVER FUNCTION TEST ABNORMAL [None]
  - GLYCOSYLATED HAEMOGLOBIN INCREASED [None]
  - COUGH [None]
  - DYSLIPIDAEMIA [None]
  - VOMITING [None]
  - NAUSEA [None]
  - CARDIOPULMONARY FAILURE [None]
  - CHRONIC OBSTRUCTIVE PULMONARY DISEASE [None]
  - RENAL IMPAIRMENT [None]
  - CARDIAC DISORDER [None]
  - HYPERTENSION [None]
  - INFLUENZA [None]
